FAERS Safety Report 5674183-X (Version None)
Quarter: 2008Q1

REPORT INFORMATION
  Report Type: 
  Country: None (occurrence: None)
  Receive Date: 20080320
  Receipt Date: 20080311
  Transmission Date: 20080703
  Serious: Yes (Hospitalization)
  Sender: FDA-Public Use
  Company Number: PHBS2008SE03202

PATIENT
  Age: 32 Year
  Sex: Male

DRUGS (7)
  1. PRAVIDEL [Suspect]
     Indication: HYPERPROLACTINAEMIA
     Dosage: 1.25 MG, BID
     Route: 048
     Dates: start: 20020820, end: 20021014
  2. PRAVIDEL [Suspect]
     Dosage: 2.5 MG, BID
     Route: 048
     Dates: start: 20021015
  3. SERDOLECT [Concomitant]
     Route: 048
     Dates: start: 20070207
  4. AKINETON [Concomitant]
     Dosage: 2 MG, UNK
     Route: 048
  5. REMERON [Concomitant]
     Dosage: 30 MG, UNK
  6. RISPERDAL [Concomitant]
  7. LEPONEX [Suspect]

REACTIONS (12)
  - ABDOMINAL DISTENSION [None]
  - ASCITES [None]
  - ELECTROCARDIOGRAM T WAVE INVERSION [None]
  - HAEMOGLOBIN DECREASED [None]
  - INTERNATIONAL NORMALISED RATIO INCREASED [None]
  - LEFT VENTRICULAR DYSFUNCTION [None]
  - MYOCARDIAL INFARCTION [None]
  - OEDEMA PERIPHERAL [None]
  - PERICARDIAL CALCIFICATION [None]
  - PERICARDITIS [None]
  - PULMONARY HYPERTENSION [None]
  - RIGHT VENTRICULAR FAILURE [None]
